FAERS Safety Report 11887307 (Version 1)
Quarter: 2016Q1

REPORT INFORMATION
  Report Type: Not Available
  Country: IT (occurrence: IT)
  Receive Date: 20160104
  Receipt Date: 20160104
  Transmission Date: 20160526
  Serious: Yes (Hospitalization)
  Sender: FDA-Public Use
  Company Number: IT-ANIPHARMA-2015-IT-000002

PATIENT
  Age: 40 Year
  Sex: Female

DRUGS (4)
  1. MAALOX ANTACID [Concomitant]
     Active Substance: ALUMINUM HYDROXIDE\DIMETHICONE\MAGNESIUM HYDROXIDE
  2. TYSABRI [Suspect]
     Active Substance: NATALIZUMAB
     Dosage: 300MG
  3. OMEPRAZOLE. [Suspect]
     Active Substance: OMEPRAZOLE
     Dosage: 20MG
  4. FLUVOXAMINE MALEATE 100 MG [Suspect]
     Active Substance: FLUVOXAMINE MALEATE
     Dosage: 100MG DAILY
     Route: 048

REACTIONS (1)
  - Progressive multifocal leukoencephalopathy [Unknown]
